FAERS Safety Report 9738448 (Version 5)
Quarter: 2017Q2

REPORT INFORMATION
  Report Type: Report from Study
  Country: BR (occurrence: BR)
  Receive Date: 20131208
  Receipt Date: 20170614
  Transmission Date: 20170830
  Serious: Yes (Hospitalization, Other)
  Sender: FDA-Public Use
  Company Number: BR-ROCHE-1291386

PATIENT
  Age: 65 Year
  Sex: Female
  Weight: 50 kg

DRUGS (11)
  1. ACTEMRA [Suspect]
     Active Substance: TOCILIZUMAB
     Indication: RHEUMATOID ARTHRITIS
     Dosage: LATEST DOSE IN 01/DEC/2016
     Route: 042
     Dates: start: 20130612
  2. FOLIC ACID. [Concomitant]
     Active Substance: FOLIC ACID
  3. GLIFAGE [Concomitant]
     Active Substance: METFORMIN HYDROCHLORIDE
  4. FOLIC ACID. [Concomitant]
     Active Substance: FOLIC ACID
  5. PREDNISONE. [Concomitant]
     Active Substance: PREDNISONE
  6. OMEPRAZOLE. [Concomitant]
     Active Substance: OMEPRAZOLE
  7. AMITRIPTYLINE [Concomitant]
     Active Substance: AMITRIPTYLINE
  8. PREDNISONE. [Concomitant]
     Active Substance: PREDNISONE
  9. RIVOTRIL [Concomitant]
     Active Substance: CLONAZEPAM
  10. SIMVASTATIN. [Concomitant]
     Active Substance: SIMVASTATIN
  11. METHOTREXATE. [Concomitant]
     Active Substance: METHOTREXATE

REACTIONS (13)
  - Osteoporosis [Not Recovered/Not Resolved]
  - Chest pain [Unknown]
  - Feeling abnormal [Recovered/Resolved]
  - Dysphonia [Not Recovered/Not Resolved]
  - Hypertension [Unknown]
  - Arthralgia [Recovering/Resolving]
  - Dizziness [Not Recovered/Not Resolved]
  - Neck pain [Recovering/Resolving]
  - Gait disturbance [Not Recovered/Not Resolved]
  - Vomiting [Unknown]
  - Musculoskeletal pain [Recovering/Resolving]
  - Bedridden [Recovered/Resolved]
  - Pain in extremity [Recovering/Resolving]

NARRATIVE: CASE EVENT DATE: 201307
